FAERS Safety Report 4660490-6 (Version None)
Quarter: 2005Q2

REPORT INFORMATION
  Report Type: 
  Country: None (occurrence: None)
  Receive Date: 20050511
  Receipt Date: 20050511
  Transmission Date: 20051028
  Serious: Yes (Hospitalization)
  Sender: FDA-Public Use
  Company Number: None

PATIENT
  Age: 61 Year
  Sex: Female
  Weight: 75.2 kg

DRUGS (6)
  1. WARFARIN [Suspect]
     Indication: THROMBOSIS PROPHYLAXIS
  2. DEPAKOTE [Concomitant]
  3. IRON [Concomitant]
  4. VICODIN [Concomitant]
  5. ZYPREXA [Concomitant]
  6. BENZTROPINE [Concomitant]

REACTIONS (9)
  - CONTUSION [None]
  - DIZZINESS [None]
  - FAECAL OCCULT BLOOD POSITIVE [None]
  - FALL [None]
  - HAEMATOCRIT DECREASED [None]
  - HAEMOGLOBIN DECREASED [None]
  - INJURY [None]
  - INTERNATIONAL NORMALISED RATIO INCREASED [None]
  - OEDEMA PERIPHERAL [None]
